FAERS Safety Report 5642651-2 (Version None)
Quarter: 2008Q1

REPORT INFORMATION
  Report Type: 
  Country: None (occurrence: None)
  Receive Date: 20080228
  Receipt Date: 20080228
  Transmission Date: 20080703
  Serious: Yes (Other)
  Sender: FDA-Public Use
  Company Number: None

PATIENT
  Age: 50 Year
  Sex: Male
  Weight: 70 kg

DRUGS (1)
  1. HEPARIN [Suspect]
     Indication: CORONARY ARTERY BYPASS
     Dosage: 25,000 UNITS ONCE IV
     Route: 042
     Dates: start: 20080213, end: 20080213

REACTIONS (2)
  - BLOOD PRESSURE DECREASED [None]
  - POST PROCEDURAL COMPLICATION [None]
